FAERS Safety Report 14141027 (Version 1)
Quarter: 2017Q4

REPORT INFORMATION
  Report Type: Spontaneous
  Country: US (occurrence: US)
  Receive Date: 20171027
  Receipt Date: 20171027
  Transmission Date: 20180321
  Serious: Yes (Life-Threatening, Hospitalization, Other)
  Sender: FDA-Public Use
  Company Number: None

PATIENT
  Age: 41 Year
  Sex: Female

DRUGS (1)
  1. FERRLECIT [Suspect]
     Active Substance: SODIUM FERRIC GLUCONATE COMPLEX
     Indication: ANAEMIA
     Route: 041
     Dates: start: 20171018, end: 20171018

REACTIONS (6)
  - Peripheral swelling [None]
  - Oedema peripheral [None]
  - Abdominal pain [None]
  - Dizziness [None]
  - Dyspnoea [None]
  - Blood pressure decreased [None]

NARRATIVE: CASE EVENT DATE: 20171018
